FAERS Safety Report 13945262 (Version 1)
Quarter: 2017Q3

REPORT INFORMATION
  Report Type: Spontaneous
  Country: NL (occurrence: NL)
  Receive Date: 20170907
  Receipt Date: 20170907
  Transmission Date: 20171128
  Serious: No
  Sender: FDA-Public Use
  Company Number: NL-LUPIN PHARMACEUTICALS INC.-2016-04230

PATIENT
  Age: 65 Year
  Sex: Male

DRUGS (6)
  1. CAPECITABINE. [Concomitant]
     Active Substance: CAPECITABINE
     Indication: ADENOCARCINOMA GASTRIC
     Dosage: 1000 MG/M2 ON DAYS 1-14, THREE-WEEKLY CYCLES
     Route: 065
  2. OXALIPLATIN. [Concomitant]
     Active Substance: OXALIPLATIN
     Indication: ADENOCARCINOMA GASTRIC
     Dosage: 130 MG/M2 ON DAY 1, THREE-WEEKLY CYCLES
     Route: 065
  3. AMLODIPINE [Suspect]
     Active Substance: AMLODIPINE BESYLATE
     Indication: HYPERTENSION
     Dosage: UNK UNK,UNK,UNKNOWN
     Route: 065
  4. AMLODIPINE [Suspect]
     Active Substance: AMLODIPINE BESYLATE
     Dosage: UNK UNK,UNK,UNKNOWN
     Route: 065
  5. IRBESARTAN. [Concomitant]
     Active Substance: IRBESARTAN
     Indication: HYPERTENSION
     Dosage: UNK UNK,UNK,UNKNOWN
     Route: 065
  6. CAPECITABINE. [Concomitant]
     Active Substance: CAPECITABINE
     Dosage: 1000 MG/M2 ON DAYS 1-14
     Route: 065

REACTIONS (2)
  - Oedema peripheral [Unknown]
  - Dizziness [Unknown]
